FAERS Safety Report 4334248-1 (Version None)
Quarter: 2004Q2

REPORT INFORMATION
  Report Type: 
  Country: None (occurrence: None)
  Receive Date: 20040405
  Receipt Date: 19921030
  Transmission Date: 20050107
  Serious: Yes (Hospitalization, Disabling)
  Sender: FDA-Public Use
  Company Number: 1992UW19951

PATIENT
  Age: 48 Year
  Sex: Male

DRUGS (5)
  1. DIPRIVAN [Suspect]
     Indication: INTENSIVE CARE
     Dosage: IV
     Route: 042
  2. DIPRIVAN [Suspect]
     Indication: SEDATION
     Dosage: IV
     Route: 042
  3. FENTANYL [Concomitant]
  4. METHYLPREDNISOLONE [Concomitant]
  5. AZATHIOPRINE [Concomitant]

REACTIONS (13)
  - BLOOD CHOLESTEROL INCREASED [None]
  - BLOOD TRIGLYCERIDES INCREASED [None]
  - CONFUSIONAL STATE [None]
  - DRUG INTERACTION [None]
  - DRUG LEVEL INCREASED [None]
  - GRAFT DYSFUNCTION [None]
  - HAEMODIALYSIS [None]
  - HIGH DENSITY LIPOPROTEIN DECREASED [None]
  - LEUKOENCEPHALOPATHY [None]
  - LOGORRHOEA [None]
  - LOW DENSITY LIPOPROTEIN DECREASED [None]
  - NEPHROPATHY TOXIC [None]
  - QUADRIPLEGIA [None]
